FAERS Safety Report 6607216-4 (Version None)
Quarter: 2010Q1

REPORT INFORMATION
  Report Type: 
  Country: None (occurrence: None)
  Receive Date: 20100227
  Receipt Date: 20100219
  Transmission Date: 20100710
  Serious: Yes (Hospitalization)
  Sender: FDA-Public Use
  Company Number: US-JNJFOC-20100209806

PATIENT
  Sex: Female
  Weight: 99.79 kg

DRUGS (3)
  1. FENTANYL-100 [Suspect]
     Indication: PAIN
     Route: 062
  2. FENTANYL-100 [Suspect]
     Dosage: 75 UG/HR,2 PATCHES EVERY 72 HOURS
     Route: 062
  3. PERCOCET [Concomitant]
     Indication: PAIN
     Route: 048

REACTIONS (3)
  - ARTHROPATHY [None]
  - DRUG ADMINISTERED AT INAPPROPRIATE SITE [None]
  - STAPHYLOCOCCAL INFECTION [None]
